FAERS Safety Report 20700844 (Version 1)
Quarter: 2022Q2

REPORT INFORMATION
  Report Type: Spontaneous
  Country: US (occurrence: US)
  Receive Date: 20220412
  Receipt Date: 20220412
  Transmission Date: 20220720
  Serious: No
  Sender: FDA-Public Use
  Company Number: US-BAXTER-2022BAX007792

PATIENT

DRUGS (1)
  1. FOSAPREPITANT DIMEGLUMINE [Suspect]
     Active Substance: FOSAPREPITANT DIMEGLUMINE
     Indication: Chemotherapy
     Dosage: INFUSION RATE OF: 330 ML PER HOUR INITIALLY AND RESUMED AGAIN AT 165 ML PER HOUR.
     Route: 065

REACTIONS (3)
  - Feeling hot [Unknown]
  - Adverse reaction [Unknown]
  - Flushing [Unknown]
